FAERS Safety Report 25379709 (Version 1)
Quarter: 2025Q2

REPORT INFORMATION
  Report Type: Spontaneous
  Country: US (occurrence: None)
  Receive Date: 20250529
  Receipt Date: 20250529
  Transmission Date: 20250717
  Serious: Yes (Death)
  Sender: FDA-CTU
  Company Number: None

PATIENT
  Age: 69 Year
  Sex: Female

DRUGS (5)
  1. MYCOPHENOLIC ACID [Suspect]
     Active Substance: MYCOPHENOLIC ACID
     Indication: Transplant rejection
     Dosage: FREQUENCY : TWICE A DAY;?
     Route: 048
  2. TACROLIMUS [Suspect]
     Active Substance: TACROLIMUS
     Indication: Transplant rejection
     Dosage: FREQUENCY : TWICE A DAY;?
     Route: 048
  3. prednisone 5 mg tabs [Concomitant]
  4. Sulfameth/trimethoprime 400/80 mg [Concomitant]
  5. Valganciclovir 450 mg tabs [Concomitant]

REACTIONS (2)
  - Pulmonary hypertension [None]
  - Death [None]

NARRATIVE: CASE EVENT DATE: 20250525
